FAERS Safety Report 6654580-6 (Version None)
Quarter: 2010Q1

REPORT INFORMATION
  Report Type: 
  Country: None (occurrence: None)
  Receive Date: 20100326
  Receipt Date: 20100316
  Transmission Date: 20100710
  Serious: Yes (Other)
  Sender: FDA-Public Use
  Company Number: US-PFIZER INC-2010027395

PATIENT
  Sex: Male
  Weight: 73.923 kg

DRUGS (7)
  1. CHANTIX [Suspect]
     Dosage: UNK
     Dates: start: 20080101, end: 20080101
  2. NICOTROL [Suspect]
     Dosage: UNK
     Route: 055
     Dates: start: 20100222
  3. ZYBAN [Suspect]
     Indication: SMOKING CESSATION THERAPY
     Dosage: UNK
     Dates: start: 20080101, end: 20080101
  4. NICOTINE [Suspect]
     Indication: SMOKING CESSATION THERAPY
     Dosage: UNK
     Dates: start: 20080101, end: 20080101
  5. PLAVIX [Concomitant]
     Indication: THROMBOSIS PROPHYLAXIS
     Dosage: 75 MG, 1X/DAY
  6. CRESTOR [Concomitant]
     Indication: BLOOD CHOLESTEROL INCREASED
     Dosage: 20 MG, 1X/DAY
  7. OMEPRAZOLE [Concomitant]
     Dosage: 20 MG, 1X/DAY

REACTIONS (6)
  - ABNORMAL DREAMS [None]
  - DRUG INEFFECTIVE [None]
  - DRUG INTOLERANCE [None]
  - EYE IRRITATION [None]
  - FEELING DRUNK [None]
  - VISION BLURRED [None]
